FAERS Safety Report 19160561 (Version 2)
Quarter: 2021Q2

REPORT INFORMATION
  Report Type: Spontaneous
  Country: US (occurrence: US)
  Receive Date: 20210421
  Receipt Date: 20210423
  Transmission Date: 20210717
  Serious: No
  Sender: FDA-Public Use
  Company Number: US-TEVA-2021-US-1899792

PATIENT
  Age: 37 Year
  Sex: Male

DRUGS (1)
  1. TADALAFIL. [Suspect]
     Active Substance: TADALAFIL
     Indication: PRODUCT USED FOR UNKNOWN INDICATION
     Dosage: PRESCRIBED 4 TIMES THE DAILY DOSE
     Route: 065
     Dates: start: 20210311

REACTIONS (5)
  - Dizziness [Unknown]
  - Product prescribing error [Unknown]
  - Orgasm abnormal [Unknown]
  - Anorgasmia [Unknown]
  - Dyspnoea [Unknown]

NARRATIVE: CASE EVENT DATE: 2021
